APPROVED DRUG PRODUCT: PROMETHAZINE HYDROCHLORIDE
Active Ingredient: PROMETHAZINE HYDROCHLORIDE
Strength: 25MG/ML
Dosage Form/Route: INJECTABLE;INJECTION
Application: A040515 | Product #001
Applicant: AMERICAN REGENT INC
Approved: Mar 19, 2003 | RLD: No | RS: No | Type: DISCN